FAERS Safety Report 10549617 (Version 1)
Quarter: 2014Q4

REPORT INFORMATION
  Report Type: Spontaneous
  Country: US (occurrence: US)
  Receive Date: 20141028
  Receipt Date: 20141028
  Transmission Date: 20150529
  Serious: Yes (Hospitalization, Other)
  Sender: FDA-Public Use
  Company Number: US-TEVA-516780USA

PATIENT
  Sex: Female

DRUGS (1)
  1. COPAXONE [Suspect]
     Active Substance: GLATIRAMER ACETATE
     Indication: MULTIPLE SCLEROSIS
     Dosage: ONCE DAILY AND EVERY OTHER DAY

REACTIONS (4)
  - Multiple sclerosis [Unknown]
  - Pain [Unknown]
  - Drug ineffective [Unknown]
  - Injection site mass [Unknown]
